FAERS Safety Report 4712214-1 (Version None)
Quarter: 2005Q3

REPORT INFORMATION
  Report Type: 
  Country: None (occurrence: None)
  Receive Date: 20050712
  Receipt Date: 20050630
  Transmission Date: 20060218
  Serious: Yes (Other)
  Sender: FDA-Public Use
  Company Number: CH-SANOFI-SYNTHELABO-A01200504532

PATIENT
  Age: 52 Year
  Sex: Female
  Weight: 63 kg

DRUGS (10)
  1. STILNOX [Suspect]
     Indication: INSOMNIA
     Dosage: 10 MG
     Route: 048
     Dates: start: 20050228, end: 20050303
  2. OLFEN [Suspect]
     Indication: JOINT DISLOCATION
     Dosage: 1 DF
     Route: 048
     Dates: start: 20050228, end: 20050303
  3. FRAGMIN [Suspect]
     Indication: DRUG USE FOR UNKNOWN INDICATION
     Dosage: 5000 IU
     Route: 058
     Dates: start: 20050228, end: 20050315
  4. NAROPIN [Suspect]
     Indication: DRUG USE FOR UNKNOWN INDICATION
     Dosage: UNK
     Route: 065
     Dates: start: 20050228, end: 20050303
  5. ACETALGINE [Suspect]
     Indication: DRUG USE FOR UNKNOWN INDICATION
     Dosage: 500 MG
     Route: 048
     Dates: start: 20050228, end: 20050303
  6. ELTROXIN [Concomitant]
     Indication: DRUG USE FOR UNKNOWN INDICATION
     Dosage: 0.1 MG
     Route: 048
     Dates: start: 20000101
  7. CARBOCISTEINE [Concomitant]
     Indication: DRUG USE FOR UNKNOWN INDICATION
     Dosage: 1 DF
     Route: 065
     Dates: start: 20050227
  8. MEPIVACAIN [Concomitant]
     Indication: DRUG USE FOR UNKNOWN INDICATION
     Route: 065
     Dates: start: 20050227, end: 20050227
  9. ULTIVA [Concomitant]
     Route: 065
     Dates: start: 20050227, end: 20050227
  10. DISOPRIVAN [Concomitant]
     Indication: DRUG USE FOR UNKNOWN INDICATION
     Route: 065
     Dates: start: 20050227, end: 20050227

REACTIONS (2)
  - CHOLESTASIS [None]
  - JAUNDICE [None]
